FAERS Safety Report 8132408-5 (Version None)
Quarter: 2012Q1

REPORT INFORMATION
  Report Type: 
  Country: None (occurrence: None)
  Receive Date: 20120213
  Receipt Date: 20120201
  Transmission Date: 20120608
  Serious: Yes (Death, Hospitalization, Other)
  Sender: FDA-Public Use
  Company Number: US-ELI_LILLY_AND_COMPANY-US201102003866

PATIENT
  Sex: Female

DRUGS (2)
  1. FORTEO [Suspect]
     Indication: OSTEOPOROSIS
     Dosage: 20 UG, DAILY (1/D)
     Dates: start: 20101110
  2. FORTEO [Suspect]
     Dosage: 20 UG, QD
     Dates: end: 20110401

REACTIONS (8)
  - GASTRIC CANCER [None]
  - ATRIAL FIBRILLATION [None]
  - DEHYDRATION [None]
  - GASTROINTESTINAL CANCER METASTATIC [None]
  - ONCOLOGIC COMPLICATION [None]
  - HOSPITALISATION [None]
  - MALNUTRITION [None]
  - PNEUMONIA [None]
